FAERS Safety Report 14271014 (Version 2)
Quarter: 2017Q4

REPORT INFORMATION
  Report Type: Spontaneous
  Country: GB (occurrence: GB)
  Receive Date: 20171211
  Receipt Date: 20171220
  Transmission Date: 20180321
  Serious: Yes (Other)
  Sender: FDA-Public Use
  Company Number: GB-OTSUKA-2016_021138

PATIENT
  Age: 17 Year
  Sex: Male

DRUGS (2)
  1. ABILIFY [Suspect]
     Active Substance: ARIPIPRAZOLE
     Dosage: 0.75 DF, UNK (PROD SEQ NUMBER: 2FA03AE1-9113-352D-AC3C-BDF376EAD5DF)
     Route: 048
  2. ABILIFY [Suspect]
     Active Substance: ARIPIPRAZOLE
     Indication: PRODUCT USED FOR UNKNOWN INDICATION
     Dosage: 1.5 DF, UNK (PROD SEQ NUMBER: 6EF06342-D74F-3A2D-96D1-77370251B655)
     Route: 048

REACTIONS (2)
  - Prescribed underdose [Unknown]
  - Seizure [Unknown]

NARRATIVE: CASE EVENT DATE: 20151029
